FAERS Safety Report 6505061-1 (Version None)
Quarter: 2009Q4

REPORT INFORMATION
  Report Type: 
  Country: None (occurrence: None)
  Receive Date: 20091218
  Receipt Date: 20091211
  Transmission Date: 20100525
  Serious: Yes (Other)
  Sender: FDA-Public Use
  Company Number: US-JNJFOC-20091204585

PATIENT
  Sex: Male
  Weight: 66.23 kg

DRUGS (3)
  1. DURAGESIC-100 [Suspect]
     Indication: PAIN
     Route: 062
     Dates: start: 20090701, end: 20090703
  2. DARVOCET [Concomitant]
     Indication: PAIN
     Route: 048
  3. LEVODOPA [Concomitant]
     Indication: PARKINSON'S DISEASE
     Route: 048

REACTIONS (2)
  - ABASIA [None]
  - PARALYSIS [None]
